FAERS Safety Report 19552788 (Version 2)
Quarter: 2021Q3

REPORT INFORMATION
  Report Type: Spontaneous
  Country: AR (occurrence: AR)
  Receive Date: 20210715
  Receipt Date: 20210726
  Transmission Date: 20211014
  Serious: Yes (Death, Other)
  Sender: FDA-Public Use
  Company Number: AR-MYLANLABS-2021M1042695

PATIENT
  Sex: Male

DRUGS (3)
  1. DIVALPROEX [Concomitant]
     Active Substance: DIVALPROEX SODIUM
     Dosage: UNK
  2. CLONAZEPAM. [Concomitant]
     Active Substance: CLONAZEPAM
     Dosage: UNK
  3. LAPENAX [Suspect]
     Active Substance: CLOZAPINE
     Indication: SCHIZOPHRENIA
     Dosage: UNK
     Dates: start: 20010115

REACTIONS (1)
  - Pneumonia [Fatal]
